FAERS Safety Report 5739542-5 (Version None)
Quarter: 2008Q2

REPORT INFORMATION
  Report Type: 
  Country: None (occurrence: None)
  Receive Date: 20080513
  Receipt Date: 20080428
  Transmission Date: 20081010
  Serious: Yes (Death)
  Sender: FDA-Public Use
  Company Number: 2008BM000076

PATIENT
  Age: 9 Year
  Sex: Male
  Weight: 16 kg

DRUGS (2)
  1. NAGLAZYME [Suspect]
     Indication: MUCOPOLYSACCHARIDOSIS VI
     Dosage: 15 MG, 1X, IV
     Route: 042
     Dates: start: 20080319, end: 20080319
  2. TAZOCIN [Concomitant]

REACTIONS (1)
  - SEPSIS [None]
